FAERS Safety Report 18966750 (Version 1)
Quarter: 2021Q1

REPORT INFORMATION
  Report Type: Spontaneous
  Country: SE (occurrence: SE)
  Receive Date: 20210304
  Receipt Date: 20210304
  Transmission Date: 20210420
  Serious: Yes (Death)
  Sender: FDA-Public Use
  Company Number: SE-ACCORD-218587

PATIENT
  Age: 39 Year
  Sex: Male
  Weight: 74 kg

DRUGS (3)
  1. TRILAFON [Suspect]
     Active Substance: PERPHENAZINE
     Indication: SCHIZOPHRENIA
     Dates: start: 201908, end: 202011
  2. CLOZAPINE. [Suspect]
     Active Substance: CLOZAPINE
     Indication: SCHIZOPHRENIA
     Dates: start: 201908, end: 202011
  3. MELATONIN [Concomitant]
     Active Substance: MELATONIN
     Dosage: 3MG IN THE EVENING

REACTIONS (1)
  - Death [Fatal]

NARRATIVE: CASE EVENT DATE: 202011
